FAERS Safety Report 8391201-9 (Version None)
Quarter: 2012Q2

REPORT INFORMATION
  Report Type: 
  Country: None (occurrence: None)
  Receive Date: 20120518
  Receipt Date: 20120503
  Transmission Date: 20120825
  Serious: Yes (Death)
  Sender: FDA-Public Use
  Company Number: ENTC2012-0192

PATIENT
  Age: 75 Year
  Sex: Male

DRUGS (1)
  1. STALEVO 100 [Suspect]
     Indication: PARKINSON'S DISEASE
     Dosage: 3 TABLETS DAILY; STRENGTH: 100/25/200, ORAL
     Route: 048
     Dates: start: 20090525

REACTIONS (1)
  - CARDIAC DISORDER [None]
